FAERS Safety Report 19330281 (Version 1)
Quarter: 2021Q2

REPORT INFORMATION
  Report Type: Spontaneous
  Country: CA (occurrence: CA)
  Receive Date: 20210528
  Receipt Date: 20210528
  Transmission Date: 20210717
  Serious: Yes (Life-Threatening, Disabling, Other)
  Sender: FDA-Public Use
  Company Number: NVSC2021CA118420

PATIENT
  Age: 40 Year
  Sex: Female

DRUGS (1)
  1. SANDOZ LEVOFLOXACIN [Suspect]
     Active Substance: LEVOFLOXACIN
     Indication: PYELONEPHRITIS
     Dosage: 750.0 MG (1 EVERY 1 DAYS)
     Route: 065

REACTIONS (15)
  - Depressed mood [Unknown]
  - Hypoaesthesia [Unknown]
  - Hypotonia [Unknown]
  - Asthenia [Unknown]
  - Fatigue [Unknown]
  - Musculoskeletal pain [Unknown]
  - Pain [Unknown]
  - Burning sensation [Unknown]
  - Sensory loss [Unknown]
  - Middle insomnia [Unknown]
  - Neuropathy peripheral [Unknown]
  - Discomfort [Unknown]
  - Disturbance in attention [Unknown]
  - Peripheral swelling [Unknown]
  - Confusional state [Unknown]
